FAERS Safety Report 7517123-0 (Version None)
Quarter: 2011Q2

REPORT INFORMATION
  Report Type: 
  Country: None (occurrence: None)
  Receive Date: 20110526
  Receipt Date: 20110526
  Transmission Date: 20111010
  Serious: No
  Sender: FDA-Public Use
  Company Number: None

PATIENT
  Age: 79 Year
  Sex: Female

DRUGS (1)
  1. DIOVAN [Suspect]
     Dosage: TAKE 1 TABLET EVERY 12 HOURS

REACTIONS (2)
  - PALPITATIONS [None]
  - PRODUCT QUALITY ISSUE [None]
